FAERS Safety Report 12599850 (Version 1)
Quarter: 2016Q3

REPORT INFORMATION
  Report Type: Spontaneous
  Country: GB (occurrence: GB)
  Receive Date: 20160727
  Receipt Date: 20160727
  Transmission Date: 20161109
  Serious: Yes (Disabling, Other)
  Sender: FDA-Public Use
  Company Number: GB-PFIZER INC-2016354268

PATIENT
  Age: 68 Year
  Sex: Female
  Weight: 52 kg

DRUGS (6)
  1. LYRICA [Suspect]
     Active Substance: PREGABALIN
     Indication: NECK PAIN
     Dosage: 87.5 MG, 2X/DAY
     Route: 048
     Dates: start: 20151206, end: 20160207
  2. CARBIMAZOLE [Concomitant]
     Active Substance: CARBIMAZOLE
     Dosage: 5 MG THREE TIMES A WEEK
  3. IBUPROFEN. [Concomitant]
     Active Substance: IBUPROFEN
     Dosage: 600 MG, UNK
     Route: 048
  4. PARACETAMOL [Concomitant]
     Active Substance: ACETAMINOPHEN
     Dosage: UNK
  5. CARDICOR [Concomitant]
     Active Substance: BISOPROLOL
     Dosage: 1.25 MG, UNK
  6. OMEPRAZOLE. [Concomitant]
     Active Substance: OMEPRAZOLE
     Dosage: 10MG-20MG

REACTIONS (18)
  - Vertigo [Not Recovered/Not Resolved]
  - Lethargy [Recovered/Resolved]
  - Confusional state [Recovered/Resolved with Sequelae]
  - Syncope [Not Recovered/Not Resolved]
  - Amnesia [Not Recovered/Not Resolved]
  - Ageusia [Recovered/Resolved with Sequelae]
  - Borderline mental impairment [Recovered/Resolved with Sequelae]
  - Mental impairment [Recovered/Resolved with Sequelae]
  - Vision blurred [Recovered/Resolved]
  - Hypotension [Recovered/Resolved]
  - Aphasia [Recovered/Resolved with Sequelae]
  - Dry eye [Recovered/Resolved]
  - Hyperacusis [Recovered/Resolved with Sequelae]
  - Clumsiness [Recovered/Resolved with Sequelae]
  - Insomnia [Not Recovered/Not Resolved]
  - Dizziness [Not Recovered/Not Resolved]
  - Hyperhidrosis [Recovered/Resolved]
  - Dysgraphia [Recovered/Resolved with Sequelae]

NARRATIVE: CASE EVENT DATE: 201512
